FAERS Safety Report 6793685-6 (Version None)
Quarter: 2010Q2

REPORT INFORMATION
  Report Type: 
  Country: None (occurrence: None)
  Receive Date: 20100624
  Receipt Date: 20090317
  Transmission Date: 20101027
  Serious: Yes (Other)
  Sender: FDA-Public Use
  Company Number: US-PFIZER INC-2009152083

PATIENT
  Sex: Male
  Weight: 77.098 kg

DRUGS (3)
  1. CADUET [Suspect]
     Indication: BLOOD CHOLESTEROL INCREASED
     Dates: start: 20060101
  2. CADUET [Suspect]
     Indication: HYPERTENSION
  3. BENICAR [Concomitant]

REACTIONS (1)
  - PROSTATIC DISORDER [None]
